FAERS Safety Report 16227115 (Version 4)
Quarter: 2019Q2

REPORT INFORMATION
  Report Type: Spontaneous
  Country: PT (occurrence: PT)
  Receive Date: 20190423
  Receipt Date: 20190524
  Transmission Date: 20190711
  Serious: Yes (Hospitalization, Other)
  Sender: FDA-Public Use
  Company Number: PT-AUROBINDO-AUR-APL-2019-022120

PATIENT

DRUGS (29)
  1. FLUCONAZOLE. [Suspect]
     Active Substance: FLUCONAZOLE
     Indication: DEVICE RELATED INFECTION
  2. METRONIDAZOLE. [Suspect]
     Active Substance: METRONIDAZOLE
     Indication: VASCULAR DEVICE INFECTION
     Dosage: UNK
     Route: 042
  3. GENTAMICIN. [Suspect]
     Active Substance: GENTAMICIN
     Indication: PSEUDOMONAS INFECTION
     Dosage: UNK, FIRST ADMNISTRATION ( ON DAY 1 OF HOSPITALIZATION)
     Route: 042
  4. VANCOMYCIN [Suspect]
     Active Substance: VANCOMYCIN
     Indication: PSEUDOMONAS INFECTION
  5. PIPERACILLIN AND TAZOBACTAM [Suspect]
     Active Substance: PIPERACILLIN SODIUM\TAZOBACTAM SODIUM
     Indication: DEVICE RELATED INFECTION
  6. METRONIDAZOLE. [Suspect]
     Active Substance: METRONIDAZOLE
     Indication: DEVICE RELATED INFECTION
  7. AMPHOTERICIN B. [Suspect]
     Active Substance: AMPHOTERICIN B
     Indication: VASCULAR DEVICE INFECTION
     Dosage: STARTED 3 DAYS
     Route: 042
  8. AMPHOTERICIN B. [Suspect]
     Active Substance: AMPHOTERICIN B
     Indication: PSEUDOMONAS INFECTION
  9. CEFTAZIDIME. [Concomitant]
     Active Substance: CEFTAZIDIME
     Indication: PSEUDOMONAS INFECTION
     Dosage: UNK
     Route: 042
  10. CEFTAZIDIME. [Concomitant]
     Active Substance: CEFTAZIDIME
     Indication: DEVICE RELATED INFECTION
  11. VANCOMYCIN [Suspect]
     Active Substance: VANCOMYCIN
     Indication: VASCULAR DEVICE INFECTION
     Dosage: UNK,THIRD ANTIMICROBIAL CYCLE)
     Route: 042
  12. VANCOMYCIN [Suspect]
     Active Substance: VANCOMYCIN
     Indication: CANDIDA INFECTION
  13. PIPERACILLIN AND TAZOBACTAM [Suspect]
     Active Substance: PIPERACILLIN SODIUM\TAZOBACTAM SODIUM
     Indication: VASCULAR DEVICE INFECTION
     Dosage: UNK
     Route: 042
  14. AMPHOTERICIN B. [Suspect]
     Active Substance: AMPHOTERICIN B
     Indication: PSEUDOMONAS INFECTION
  15. VANCOMYCIN [Suspect]
     Active Substance: VANCOMYCIN
     Indication: DEVICE RELATED INFECTION
  16. CEFTAZIDIME. [Concomitant]
     Active Substance: CEFTAZIDIME
     Indication: DEVICE RELATED INFECTION
  17. FLUCONAZOLE. [Suspect]
     Active Substance: FLUCONAZOLE
     Indication: VASCULAR DEVICE INFECTION
     Dosage: UNK
     Route: 042
  18. FLUCONAZOLE. [Suspect]
     Active Substance: FLUCONAZOLE
     Indication: PSEUDOMONAS INFECTION
  19. GENTAMICIN. [Suspect]
     Active Substance: GENTAMICIN
     Indication: DEVICE RELATED INFECTION
  20. AMPHOTERICIN B. [Suspect]
     Active Substance: AMPHOTERICIN B
     Indication: CANDIDA INFECTION
  21. PIPERACILLIN AND TAZOBACTAM [Suspect]
     Active Substance: PIPERACILLIN SODIUM\TAZOBACTAM SODIUM
     Indication: PSEUDOMONAS INFECTION
  22. METRONIDAZOLE. [Suspect]
     Active Substance: METRONIDAZOLE
     Indication: PSEUDOMONAS INFECTION
  23. GENTAMICIN. [Suspect]
     Active Substance: GENTAMICIN
     Indication: STAPHYLOCOCCAL INFECTION
     Dosage: UNK, SECOND ADMNISTRATION : 3 DAYS AFTER FINISHING THE FIRST COURSE OF ANTIBIOTICS
     Route: 042
  24. VANCOMYCIN [Suspect]
     Active Substance: VANCOMYCIN
     Indication: STAPHYLOCOCCAL INFECTION
  25. PIPERACILLIN AND TAZOBACTAM [Suspect]
     Active Substance: PIPERACILLIN SODIUM\TAZOBACTAM SODIUM
     Indication: CANDIDA INFECTION
  26. FLUCONAZOLE. [Suspect]
     Active Substance: FLUCONAZOLE
     Indication: CANDIDA INFECTION
     Dosage: UNK, FIRST ADMNISTRATION ON DAY 25 OF  HOSPITALIZATION- THIRD ANTIBIOTIC CYCLE
     Route: 042
  27. METRONIDAZOLE. [Suspect]
     Active Substance: METRONIDAZOLE
     Indication: CANDIDA INFECTION
  28. GENTAMICIN. [Suspect]
     Active Substance: GENTAMICIN
     Indication: CANDIDA INFECTION
  29. CEFTAZIDIME. [Concomitant]
     Active Substance: CEFTAZIDIME
     Indication: CANDIDA INFECTION

REACTIONS (11)
  - Respiratory alkalosis [Recovering/Resolving]
  - Acute kidney injury [Recovered/Resolved]
  - Ascites [Recovering/Resolving]
  - Pleural effusion [Recovering/Resolving]
  - Product use issue [Unknown]
  - Nephropathy toxic [Recovering/Resolving]
  - Metabolic acidosis [Recovered/Resolved]
  - Oliguria [Recovering/Resolving]
  - Generalised oedema [Recovering/Resolving]
  - Weight increased [Recovering/Resolving]
  - Off label use [Unknown]
